FAERS Safety Report 6884347-5 (Version None)
Quarter: 2010Q3

REPORT INFORMATION
  Report Type: 
  Country: None (occurrence: None)
  Receive Date: 20100729
  Receipt Date: 20070707
  Transmission Date: 20110219
  Serious: No
  Sender: FDA-Public Use
  Company Number: US-PFIZER INC-2007055979

PATIENT
  Sex: Female
  Weight: 75 kg

DRUGS (4)
  1. CELEBREX [Suspect]
     Indication: POLYARTHRITIS
     Dates: start: 20070401
  2. SIMVASTATIN [Concomitant]
     Indication: BLOOD CHOLESTEROL INCREASED
  3. PRILOSEC [Concomitant]
  4. PAXIL [Concomitant]

REACTIONS (1)
  - INCORRECT DOSE ADMINISTERED [None]
